FAERS Safety Report 6569035-7 (Version None)
Quarter: 2010Q1

REPORT INFORMATION
  Report Type: 
  Country: None (occurrence: None)
  Receive Date: 20100203
  Receipt Date: 20100121
  Transmission Date: 20100710
  Serious: Yes (Other)
  Sender: FDA-Public Use
  Company Number: PHHY2009GB55048

PATIENT
  Sex: Male
  Weight: 78.005 kg

DRUGS (1)
  1. AREDIA [Suspect]
     Indication: OSTEITIS
     Dosage: UNK
     Dates: start: 20061212

REACTIONS (6)
  - DRUG ADMINISTRATION ERROR [None]
  - ERYTHEMA [None]
  - INFUSION SITE EXTRAVASATION [None]
  - INFUSION SITE PAIN [None]
  - INFUSION SITE REACTION [None]
  - SKIN ULCER [None]
